FAERS Safety Report 14239837 (Version 1)
Quarter: 2017Q4

REPORT INFORMATION
  Report Type: Spontaneous
  Country: US (occurrence: US)
  Receive Date: 20171130
  Receipt Date: 20171130
  Transmission Date: 20180321
  Serious: Yes (Hospitalization, Other)
  Sender: FDA-Public Use
  Company Number: US-PFIZER INC-2017511162

PATIENT
  Age: 58 Year
  Sex: Female
  Weight: 68 kg

DRUGS (6)
  1. ASPIRIN. [Concomitant]
     Active Substance: ASPIRIN
     Indication: COLORECTAL CANCER
     Dosage: 1 DF, DAILY
     Dates: start: 2015
  2. ONE A DAY WOMEN^S 50+ HEALTHY ADVANTAGE [Concomitant]
     Active Substance: VITAMINS
     Indication: COLORECTAL CANCER
     Dosage: 1 DF, DAILY
  3. ATROPINE SULFATE/DIPHENOXYLATE HYDROCHLORIDE [Suspect]
     Active Substance: ATROPINE SULFATE\DIPHENOXYLATE HYDROCHLORIDE
     Dosage: UNK
     Dates: end: 2017
  4. ATROPINE SULFATE/DIPHENOXYLATE HYDROCHLORIDE [Suspect]
     Active Substance: ATROPINE SULFATE\DIPHENOXYLATE HYDROCHLORIDE
     Indication: DIARRHOEA
     Dosage: 2 TABLETS AFTER EACH STOOL, 1 TABLET AFTER SUBSEQUENT STOOL, SHE TOOK MAX 8 TABLETS/DAY
     Dates: start: 2016, end: 201704
  5. NEXIUM [Concomitant]
     Active Substance: ESOMEPRAZOLE MAGNESIUM
     Indication: GASTROOESOPHAGEAL REFLUX DISEASE
     Dosage: 40 MG, DAILY
  6. CALTRATE [Concomitant]
     Active Substance: CALCIUM CARBONATE
     Indication: COLORECTAL CANCER
     Dosage: UNK, DAILY
     Dates: start: 2015

REACTIONS (17)
  - Blood potassium decreased [Recovered/Resolved]
  - Lethargy [Recovered/Resolved]
  - Weight decreased [Unknown]
  - Drug ineffective [Unknown]
  - Back pain [Unknown]
  - Sleep disorder [Unknown]
  - Product use issue [Unknown]
  - Rectal haemorrhage [Recovered/Resolved]
  - Rectal fissure [Recovering/Resolving]
  - Seizure [Recovered/Resolved]
  - Fall [Unknown]
  - Intentional product misuse [Unknown]
  - Somnolence [Recovered/Resolved]
  - Acrochordon [Recovering/Resolving]
  - Myalgia [Unknown]
  - Flushing [Recovered/Resolved]
  - Dyspnoea [Unknown]

NARRATIVE: CASE EVENT DATE: 2016
